FAERS Safety Report 4844110-3 (Version None)
Quarter: 2005Q4

REPORT INFORMATION
  Report Type: 
  Country: None (occurrence: None)
  Receive Date: 20051202
  Receipt Date: 20051123
  Transmission Date: 20060501
  Serious: Yes (Hospitalization)
  Sender: FDA-Public Use
  Company Number: BR-ROCHE-426179

PATIENT
  Age: 51 Year
  Sex: Female
  Weight: 58 kg

DRUGS (6)
  1. RIVOTRIL [Suspect]
     Indication: INSOMNIA
     Dosage: INDICATION REPORTED AS INSOMNIA / ANXIETY.
     Route: 048
     Dates: start: 20051119, end: 20051121
  2. PROPRANOLOL [Concomitant]
     Indication: HYPERTENSION
     Route: 048
  3. AMITRIL [Concomitant]
     Route: 048
  4. HYDROCHLOROTHIAZIDE [Concomitant]
     Indication: HYPERTENSION
     Route: 048
  5. CAPTOPRIL [Concomitant]
  6. LISINOPRIL [Concomitant]
     Route: 060
     Dates: start: 20051121, end: 20051122

REACTIONS (2)
  - BLOOD PRESSURE INCREASED [None]
  - COUGH [None]
